FAERS Safety Report 13610944 (Version 2)
Quarter: 2017Q2

REPORT INFORMATION
  Report Type: Spontaneous
  Country: JP (occurrence: JP)
  Receive Date: 20170605
  Receipt Date: 20170629
  Transmission Date: 20170830
  Serious: Yes (Other)
  Sender: FDA-Public Use
  Company Number: PHJP2017JP017748

PATIENT
  Age: 72 Year
  Sex: Male
  Weight: 62 kg

DRUGS (1)
  1. NEORAL [Suspect]
     Active Substance: CYCLOSPORINE
     Indication: APLASIA PURE RED CELL
     Dosage: 300 MG, UNK
     Route: 048
     Dates: start: 20131203, end: 20161129

REACTIONS (3)
  - Cardiac failure [Recovered/Resolved]
  - Drug ineffective for unapproved indication [Unknown]
  - Product use in unapproved indication [Unknown]

NARRATIVE: CASE EVENT DATE: 20131203
